FAERS Safety Report 11110061 (Version 1)
Quarter: 2015Q2

REPORT INFORMATION
  Report Type: Spontaneous
  Country: US (occurrence: US)
  Receive Date: 20150513
  Receipt Date: 20150513
  Transmission Date: 20150821
  Serious: No
  Sender: FDA-Public Use
  Company Number: US-PFIZER INC-2015157213

PATIENT
  Sex: Male

DRUGS (1)
  1. LYRICA [Suspect]
     Active Substance: PREGABALIN
     Indication: CHEMOTHERAPY TOXICITY ATTENUATION
     Dosage: UNK

REACTIONS (2)
  - Product use issue [Unknown]
  - Hypoaesthesia [Unknown]
